FAERS Safety Report 7051704-6 (Version None)
Quarter: 2010Q4

REPORT INFORMATION
  Report Type: 
  Country: None (occurrence: None)
  Receive Date: 20101018
  Receipt Date: 20101018
  Transmission Date: 20110411
  Serious: Yes (Hospitalization)
  Sender: FDA-Public Use
  Company Number: None

PATIENT
  Sex: Male
  Weight: 66 kg

DRUGS (1)
  1. BORTEZOMIB [Suspect]
     Indication: MULTIPLE MYELOMA
     Dosage: 2.9 MG DYS 1,8,15 Q28DYS IV
     Route: 042
     Dates: start: 20101001, end: 20101008

REACTIONS (4)
  - BLOOD CULTURE POSITIVE [None]
  - CATHETER CULTURE POSITIVE [None]
  - HAEMOGLOBIN DECREASED [None]
  - STREPTOCOCCUS TEST POSITIVE [None]
